FAERS Safety Report 12632639 (Version 2)
Quarter: 2016Q3

REPORT INFORMATION
  Report Type: Spontaneous
  Country: US (occurrence: US)
  Receive Date: 20160808
  Receipt Date: 20160808
  Transmission Date: 20161109
  Serious: No
  Sender: FDA-Public Use
  Company Number: US-BEH-2015056350

PATIENT
  Sex: Female
  Weight: 83 kg

DRUGS (58)
  1. EPIPEN [Concomitant]
     Active Substance: EPINEPHRINE
  2. DICYCLOMINE [Concomitant]
     Active Substance: DICYCLOMINE HYDROCHLORIDE
  3. LORTAB [Concomitant]
     Active Substance: ACETAMINOPHEN\HYDROCODONE BITARTRATE
  4. ZOLPIDEM [Concomitant]
     Active Substance: ZOLPIDEM\ZOLPIDEM TARTRATE
  5. HIZENTRA [Suspect]
     Active Substance: HUMAN IMMUNOGLOBULIN G
     Indication: IMMUNODEFICIENCY COMMON VARIABLE
     Route: 058
  6. PYRIDIUM [Concomitant]
     Active Substance: PHENAZOPYRIDINE
  7. PREDNISONE. [Concomitant]
     Active Substance: PREDNISONE
  8. TEKTURNA [Concomitant]
     Active Substance: ALISKIREN HEMIFUMARATE
  9. POTASSIUM [Concomitant]
     Active Substance: POTASSIUM
  10. ANUSOL-HC [Concomitant]
  11. CLONIDINE. [Concomitant]
     Active Substance: CLONIDINE
  12. BUDESONIDE. [Concomitant]
     Active Substance: BUDESONIDE
  13. CULTURELLE [Concomitant]
     Active Substance: LACTOBACILLUS RHAMNOSUS
  14. VERAPAMIL ER [Concomitant]
     Active Substance: VERAPAMIL HYDROCHLORIDE
  15. PROTON PUMP INHIBITORS [Concomitant]
     Active Substance: UNSPECIFIED INGREDIENT
  16. LIDOCAINE/PRILOCAINE [Concomitant]
     Active Substance: LIDOCAINE\PRILOCAINE
  17. HYOSCYAMINE SULF [Concomitant]
  18. MACROBID [Concomitant]
     Active Substance: NITROFURANTOIN\NITROFURANTOIN MONOHYDRATE
  19. HYDRALAZINE [Concomitant]
     Active Substance: HYDRALAZINE HYDROCHLORIDE
  20. STOOL SOFTENER [Concomitant]
     Active Substance: DOCUSATE CALCIUM
  21. NYSTATIN. [Concomitant]
     Active Substance: NYSTATIN
  22. SOOTHE HYDRATION [Concomitant]
     Active Substance: POVIDONE
  23. IRON [Concomitant]
     Active Substance: IRON
  24. PATANOL [Concomitant]
     Active Substance: OLOPATADINE HYDROCHLORIDE
  25. BENEFIBER [Concomitant]
     Active Substance: STARCH, WHEAT
  26. GABAPENTIN. [Concomitant]
     Active Substance: GABAPENTIN
  27. METOPROLOL SUCC ER [Concomitant]
     Active Substance: METOPROLOL SUCCINATE
  28. SINGULAIR [Concomitant]
     Active Substance: MONTELUKAST SODIUM
  29. MICARDIS [Concomitant]
     Active Substance: TELMISARTAN
  30. TUSSIONEX PENNKINETIC [Concomitant]
     Active Substance: CHLORPHENIRAMINE\HYDROCODONE
  31. DIPHENHYDRAMINE. [Concomitant]
     Active Substance: DIPHENHYDRAMINE
  32. CIPROFLOXACIN. [Concomitant]
     Active Substance: CIPROFLOXACIN
  33. HYDROCORTISONE. [Concomitant]
     Active Substance: HYDROCORTISONE
  34. OMEPRAZOLE. [Concomitant]
     Active Substance: OMEPRAZOLE
  35. MIRALAX [Concomitant]
     Active Substance: POLYETHYLENE GLYCOL 3350
  36. HIZENTRA [Suspect]
     Active Substance: HUMAN IMMUNOGLOBULIN G
     Indication: HYPOGAMMAGLOBULINAEMIA
     Route: 058
  37. HYDROXYZINE HCL [Concomitant]
     Active Substance: HYDROXYZINE HYDROCHLORIDE
  38. ACETAMINOPHEN. [Concomitant]
     Active Substance: ACETAMINOPHEN
  39. COLACE [Concomitant]
     Active Substance: DOCUSATE SODIUM
  40. NEURONTIN [Concomitant]
     Active Substance: GABAPENTIN
  41. TRAVATAN Z [Concomitant]
     Active Substance: TRAVOPROST
  42. LYRICA [Concomitant]
     Active Substance: PREGABALIN
  43. COLCRYS [Concomitant]
     Active Substance: COLCHICINE
  44. OXYCONTIN [Concomitant]
     Active Substance: OXYCODONE HYDROCHLORIDE
  45. ALLEGRA [Concomitant]
     Active Substance: FEXOFENADINE HYDROCHLORIDE
  46. ACYCLOVIR. [Concomitant]
     Active Substance: ACYCLOVIR
  47. TRANDOLAPRIL. [Concomitant]
     Active Substance: TRANDOLAPRIL
  48. THEOPHYLLINE [Concomitant]
     Active Substance: THEOPHYLLINE ANHYDROUS
  49. HIZENTRA [Suspect]
     Active Substance: HUMAN IMMUNOGLOBULIN G
     Route: 058
  50. METRONIDAZOLE. [Concomitant]
     Active Substance: METRONIDAZOLE
  51. FUROSEMIDE. [Concomitant]
     Active Substance: FUROSEMIDE
  52. NASACORT [Concomitant]
     Active Substance: TRIAMCINOLONE ACETONIDE
  53. ADVAIR HFA [Concomitant]
     Active Substance: FLUTICASONE PROPIONATE\SALMETEROL XINAFOATE
  54. BROVANA [Concomitant]
     Active Substance: ARFORMOTEROL TARTRATE
  55. FLUCONAZOLE. [Concomitant]
     Active Substance: FLUCONAZOLE
  56. XANAX [Concomitant]
     Active Substance: ALPRAZOLAM
  57. LASIX [Concomitant]
     Active Substance: FUROSEMIDE
  58. LIPITOR [Concomitant]
     Active Substance: ATORVASTATIN CALCIUM

REACTIONS (1)
  - Sinusitis [Unknown]
